FAERS Safety Report 7516731-0 (Version None)
Quarter: 2011Q2

REPORT INFORMATION
  Report Type: 
  Country: None (occurrence: None)
  Receive Date: 20110601
  Receipt Date: 20110523
  Transmission Date: 20111010
  Serious: Yes (Other)
  Sender: FDA-Public Use
  Company Number: GB-ABBOTT-11P-167-0728797-00

PATIENT
  Age: 46 Year
  Sex: Female

DRUGS (3)
  1. SIMVASTATIN [Interacting]
     Indication: TYPE IIA HYPERLIPIDAEMIA
  2. EZETIMIBE [Concomitant]
     Indication: TYPE IIA HYPERLIPIDAEMIA
  3. FENOFIBRATE [Suspect]
     Indication: TYPE IIA HYPERLIPIDAEMIA

REACTIONS (2)
  - DRUG INTERACTION [None]
  - HIGH DENSITY LIPOPROTEIN DECREASED [None]
